FAERS Safety Report 20502830 (Version 1)
Quarter: 2022Q1

REPORT INFORMATION
  Report Type: Spontaneous
  Country: GB (occurrence: GB)
  Receive Date: 20220222
  Receipt Date: 20220222
  Transmission Date: 20220423
  Serious: Yes (Other)
  Sender: FDA-Public Use
  Company Number: GB-MYLANLABS-2022M1009718

PATIENT
  Age: 34 Year
  Sex: Male
  Weight: 118 kg

DRUGS (5)
  1. CLOZARIL [Suspect]
     Active Substance: CLOZAPINE
     Indication: Schizophrenia
     Dosage: 850 MILLIGRAM (375MG MANE AND 475MG NOCTE)
     Route: 048
     Dates: start: 20180112, end: 20220126
  2. CLOZARIL [Suspect]
     Active Substance: CLOZAPINE
     Dosage: 25MG AS A STAT DOSE AT 4PM AND 200MG NOCTE
     Route: 048
     Dates: start: 20220128
  3. CLOZARIL [Suspect]
     Active Substance: CLOZAPINE
     Dosage: 500 MILLIGRAM (200MG MANE AND 300MG NOCTE)
     Route: 048
     Dates: start: 20220129
  4. CLOZARIL [Suspect]
     Active Substance: CLOZAPINE
     Dosage: 700 MILLIGRAM (300MG MANE AND 400MG NOCTE)
     Route: 048
     Dates: start: 20220130
  5. CLOZARIL [Suspect]
     Active Substance: CLOZAPINE
     Dosage: 850 MILLIGRAM (375MG MAND AND 475MG NOCTE)
     Route: 048
     Dates: start: 20220131

REACTIONS (5)
  - Neutrophil count decreased [Recovered/Resolved]
  - COVID-19 [Recovered/Resolved]
  - Rash [Recovered/Resolved]
  - White blood cell count decreased [Recovered/Resolved]
  - Therapeutic product effect incomplete [Unknown]

NARRATIVE: CASE EVENT DATE: 20220101
